FAERS Safety Report 5908200-6 (Version None)
Quarter: 2008Q4

REPORT INFORMATION
  Report Type: 
  Country: None (occurrence: None)
  Receive Date: 20081005
  Receipt Date: 20080929
  Transmission Date: 20090506
  Serious: Yes (Hospitalization)
  Sender: FDA-Public Use
  Company Number: US-CELGENEUS-163-20785-08091645

PATIENT
  Sex: Female

DRUGS (3)
  1. THALOMID [Suspect]
     Indication: MULTIPLE MYELOMA
     Route: 048
     Dates: start: 20080410
  2. THALOMID [Suspect]
     Route: 048
     Dates: start: 20041122, end: 20051201
  3. THALOMID [Suspect]
     Route: 048
     Dates: start: 20041102, end: 20041101

REACTIONS (1)
  - UNEVALUABLE EVENT [None]
